FAERS Safety Report 9402049 (Version 1)
Quarter: 2013Q3

REPORT INFORMATION
  Report Type: Spontaneous
  Country: US (occurrence: US)
  Receive Date: 20130716
  Receipt Date: 20130716
  Transmission Date: 20140515
  Serious: Yes (Other)
  Sender: FDA-Public Use
  Company Number: PHEH2013US004486

PATIENT
  Age: 61 Year
  Sex: Male

DRUGS (1)
  1. GILENYA [Suspect]
     Indication: MULTIPLE SCLEROSIS
     Dosage: 0.5 MG, QD
     Route: 048
     Dates: start: 20110812, end: 20130129

REACTIONS (2)
  - Macular fibrosis [Not Recovered/Not Resolved]
  - Macular oedema [Recovered/Resolved with Sequelae]
